FAERS Safety Report 17058477 (Version 3)
Quarter: 2019Q4

REPORT INFORMATION
  Report Type: Spontaneous
  Country: US (occurrence: US)
  Receive Date: 20191121
  Receipt Date: 20191227
  Transmission Date: 20200122
  Serious: Yes (Other)
  Sender: FDA-Public Use
  Company Number: US-SIGMAPHARM LABORATORIES, LLC-2019SIG00131

PATIENT
  Age: 54 Year
  Sex: Female
  Weight: 86.17 kg

DRUGS (13)
  1. ALBUTEROL. [Concomitant]
     Active Substance: ALBUTEROL
  2. SPIRONOLACTONE. [Concomitant]
     Active Substance: SPIRONOLACTONE
  3. UNSPECIFIED HEART MEDICATION [Concomitant]
     Active Substance: UNSPECIFIED INGREDIENT
  4. MACITENTAN [Concomitant]
     Active Substance: MACITENTAN
  5. UNSPECIFIED LUNG MEDICATION [Concomitant]
  6. SILDENAFIL. [Concomitant]
     Active Substance: SILDENAFIL
  7. ASPIRIN. [Concomitant]
     Active Substance: ASPIRIN
  8. LISINOPRIL. [Concomitant]
     Active Substance: LISINOPRIL
  9. FUROSEMIDE. [Concomitant]
     Active Substance: FUROSEMIDE
  10. AMBRISENTAN [Suspect]
     Active Substance: AMBRISENTAN
     Indication: PULMONARY ARTERIAL HYPERTENSION
     Dosage: 10 MG, 1X/DAY
     Route: 048
     Dates: start: 2019
  11. LOSARTAN. [Concomitant]
     Active Substance: LOSARTAN
     Dosage: UNK
     Dates: end: 201911
  12. FLUTICASONE. [Concomitant]
     Active Substance: FLUTICASONE
  13. FEXOFENADINE/PSEUDOEPHEDRINE 12HR-ER [Concomitant]

REACTIONS (5)
  - Oesophageal food impaction [Recovered/Resolved]
  - Product dose omission [Recovered/Resolved]
  - Eructation [Recovering/Resolving]
  - Vomiting [Recovering/Resolving]
  - Oesophageal irritation [Unknown]

NARRATIVE: CASE EVENT DATE: 201910
